FAERS Safety Report 6209327-4 (Version None)
Quarter: 2009Q2

REPORT INFORMATION
  Report Type: 
  Country: None (occurrence: None)
  Receive Date: 20090529
  Receipt Date: 20090508
  Transmission Date: 20091009
  Serious: Yes (Other)
  Sender: FDA-Public Use
  Company Number: DE-ELI_LILLY_AND_COMPANY-DE200904002659

PATIENT
  Sex: Female

DRUGS (8)
  1. FORTEO [Suspect]
     Indication: OSTEOPOROTIC FRACTURE
     Dosage: UNK, UNKNOWN
     Route: 058
     Dates: start: 20081201, end: 20090405
  2. CALCIUM [Concomitant]
     Dosage: UNK, UNKNOWN
     Route: 065
     Dates: start: 20090201, end: 20090101
  3. VITAMIN D [Concomitant]
     Dosage: UNK, UNKNOWN
     Route: 065
     Dates: start: 20090201, end: 20090101
  4. PREDNISOLONE [Concomitant]
     Dosage: 5 MG, UNKNOWN
     Route: 065
  5. THEOPHYLLINE [Concomitant]
     Dosage: 400 MG, 2/D
     Route: 065
  6. BRICANYL-DURILES [Concomitant]
     Dosage: 1 D/F, EACH MORNING
     Route: 065
  7. LIVIELLA [Concomitant]
     Dosage: UNK, EVERY 3 DAYS
     Route: 065
  8. FLUTIDE [Concomitant]
     Indication: BRONCHIAL DISORDER
     Dosage: UNK, UNKNOWN
     Route: 065

REACTIONS (9)
  - ASTHENIA [None]
  - GENERAL PHYSICAL HEALTH DETERIORATION [None]
  - HYPERCALCAEMIA [None]
  - NAUSEA [None]
  - NEOPLASM [None]
  - NEOPLASM MALIGNANT [None]
  - PROCOLLAGEN TYPE I C-TERMINAL PROPEPTIDE INCREASED [None]
  - SARCOIDOSIS [None]
  - WEIGHT DECREASED [None]
